FAERS Safety Report 6639069-2 (Version None)
Quarter: 2010Q1

REPORT INFORMATION
  Report Type: 
  Country: None (occurrence: None)
  Receive Date: 20100317
  Receipt Date: 20100306
  Transmission Date: 20100710
  Serious: No
  Sender: FDA-Public Use
  Company Number: US-B.I. PHARMACEUTICALS,INC./RIDGEFIELD-2010-BP-02749BP

PATIENT
  Sex: Male

DRUGS (2)
  1. ZANTAC 75 [Suspect]
     Indication: DYSPEPSIA
     Dosage: 75 MG
     Route: 048
     Dates: start: 20050101
  2. CLINDAMYCIN [Suspect]
     Indication: SINUSITIS
     Dosage: 600 MG
     Route: 048
     Dates: start: 20100304

REACTIONS (1)
  - DRUG INEFFECTIVE [None]
